FAERS Safety Report 6384155-8 (Version None)
Quarter: 2009Q3

REPORT INFORMATION
  Report Type: 
  Country: None (occurrence: None)
  Receive Date: 20090929
  Receipt Date: 20090914
  Transmission Date: 20100115
  Serious: Yes (Life-Threatening, Hospitalization, Other)
  Sender: FDA-Public Use
  Company Number: 08-AUR-06527

PATIENT
  Age: 23 Year
  Sex: Female

DRUGS (3)
  1. LAMOTRIGINE [Suspect]
     Dosage: 9.2G - X1 - ORAL
     Route: 048
  2. CITALOPRAM HYDROBROMIDE [Suspect]
     Dosage: 220MG - X1
  3. CHLORPHENIRAMINE MALEATE [Suspect]
     Dosage: 56MG - X1 - ORAL
     Route: 048

REACTIONS (14)
  - AGITATION [None]
  - ALCOHOL POISONING [None]
  - BLOOD PRESSURE DECREASED [None]
  - DEPRESSED LEVEL OF CONSCIOUSNESS [None]
  - ELECTROCARDIOGRAM QRS COMPLEX PROLONGED [None]
  - ELECTROCARDIOGRAM QT PROLONGED [None]
  - HEART RATE DECREASED [None]
  - METABOLIC ACIDOSIS [None]
  - MULTIPLE DRUG OVERDOSE INTENTIONAL [None]
  - NYSTAGMUS [None]
  - PUPILLARY REFLEX IMPAIRED [None]
  - RESPIRATORY RATE DECREASED [None]
  - SINUS TACHYCARDIA [None]
  - TREMOR [None]
